FAERS Safety Report 18230646 (Version 3)
Quarter: 2020Q4

REPORT INFORMATION
  Report Type: Report from Study
  Country: None (occurrence: US)
  Receive Date: 20200904
  Receipt Date: 20201020
  Transmission Date: 20210113
  Serious: Yes (Other)
  Sender: FDA-Public Use
  Company Number: US-ABBVIE-20K-163-3546202-00

PATIENT
  Sex: Female
  Weight: 81.27 kg

DRUGS (1)
  1. HUMIRA [Suspect]
     Active Substance: ADALIMUMAB
     Indication: RHEUMATOID ARTHRITIS
     Dosage: CF
     Route: 058

REACTIONS (5)
  - Procedural pain [Unknown]
  - Scar [Unknown]
  - Weight bearing difficulty [Unknown]
  - Limb injury [Unknown]
  - Post procedural complication [Unknown]
